FAERS Safety Report 9708283 (Version 3)
Quarter: 2013Q4

REPORT INFORMATION
  Report Type: Spontaneous
  Country: JP (occurrence: JP)
  Receive Date: 20131125
  Receipt Date: 20131223
  Transmission Date: 20140711
  Serious: Yes (Other)
  Sender: FDA-Public Use
  Company Number: JP-TEVA-446779ISR

PATIENT
  Age: 69 Year
  Sex: Male
  Weight: 72 kg

DRUGS (2)
  1. CISPLATIN [Suspect]
     Indication: METASTATIC CARCINOMA OF THE BLADDER
     Dosage: FIVE COURSES 70 MG/M2X1
     Dates: start: 200909, end: 201007
  2. GEMCITABINE HYDROCHLORIDE [Suspect]
     Indication: METASTATIC CARCINOMA OF THE BLADDER
     Dosage: FIVE COURSES 1000 MG/M2X3
     Dates: start: 200909, end: 201007

REACTIONS (8)
  - Neutropenia [Unknown]
  - Leukopenia [Unknown]
  - Haemoglobin decreased [Unknown]
  - Thrombocytopenia [Unknown]
  - Pyrexia [Unknown]
  - Aphthous stomatitis [Unknown]
  - Nausea [Unknown]
  - Vomiting [Unknown]
